FAERS Safety Report 25528415 (Version 1)
Quarter: 2025Q3

REPORT INFORMATION
  Report Type: Spontaneous
  Country: US (occurrence: US)
  Receive Date: 20250708
  Receipt Date: 20250708
  Transmission Date: 20251021
  Serious: Yes (Other)
  Sender: Pyros Pharmaceuticals
  Company Number: US-PYROS PHARMACEUTICALS, INC-20250500871

PATIENT
  Age: 0 Year

DRUGS (1)
  1. VIGAFYDE [Suspect]
     Active Substance: VIGABATRIN
     Indication: Tuberous sclerosis complex
     Route: 048
     Dates: start: 20250503

REACTIONS (1)
  - Seizure [Recovered/Resolved]

NARRATIVE: CASE EVENT DATE: 20250501
